FAERS Safety Report 8440657-1 (Version None)
Quarter: 2012Q2

REPORT INFORMATION
  Report Type: 
  Country: None (occurrence: None)
  Receive Date: 20120615
  Receipt Date: 20120606
  Transmission Date: 20120825
  Serious: Yes (Other)
  Sender: FDA-Public Use
  Company Number: DE-JNJFOC-20120604263

PATIENT
  Sex: Male

DRUGS (5)
  1. REMICADE [Suspect]
     Route: 042
     Dates: start: 20120101
  2. REMICADE [Suspect]
     Route: 042
     Dates: start: 20120301
  3. REMICADE [Suspect]
     Indication: COLITIS ULCERATIVE
     Route: 042
     Dates: start: 20111201
  4. AZATHIOPRINE [Suspect]
     Indication: PRODUCT USED FOR UNKNOWN INDICATION
     Route: 065
  5. REMICADE [Suspect]
     Route: 042
     Dates: start: 20080101

REACTIONS (3)
  - MALAISE [None]
  - HAEMATOCHEZIA [None]
  - HORDEOLUM [None]
